FAERS Safety Report 9745382 (Version 1)
Quarter: 2013Q4

REPORT INFORMATION
  Report Type: Spontaneous
  Country: CZ (occurrence: None)
  Receive Date: 20131204
  Receipt Date: 20131204
  Transmission Date: 20140711
  Serious: Yes (Other)
  Sender: FDA-Public Use
  Company Number: FK201305175

PATIENT
  Age: 42 Year
  Sex: Female

DRUGS (7)
  1. PACLITAXEL [Suspect]
     Indication: BREAST CANCER
     Dosage: 90 MG/M2, APPLIED FOR 1 H, 12 WEEKLY CYCLES
  2. CYCLOPHOSPHAMIDE (CYCLOPHOSPHAMIDE) [Concomitant]
  3. ADRIAMYCIN (DOXORUBICIN) INJ. USP 10MG/5ML [Concomitant]
  4. DEXAMETHASONE (DEXAMETHASONE) [Concomitant]
  5. RANITIDINE (RANITIDINE) [Concomitant]
  6. ONDANSETRON (ONDANSETRON) [Concomitant]
  7. BISULEPIN (BISULEPIN) [Concomitant]

REACTIONS (1)
  - Hallucination [None]
